FAERS Safety Report 6696266-8 (Version None)
Quarter: 2010Q2

REPORT INFORMATION
  Report Type: 
  Country: None (occurrence: None)
  Receive Date: 20100421
  Receipt Date: 20100409
  Transmission Date: 20101027
  Serious: Yes (Life-Threatening)
  Sender: FDA-Public Use
  Company Number: 2010AL002229

PATIENT
  Age: 86 Year
  Sex: Male

DRUGS (4)
  1. AMLODIPINE BESYLATE [Suspect]
     Dosage: 5 MG; QD; PO
     Route: 048
     Dates: start: 20091127, end: 20100324
  2. ACETYLSALICYLIC ACID [Concomitant]
  3. ATENOLOL [Concomitant]
  4. MDUR COD-LIVER OIL [Concomitant]

REACTIONS (1)
  - SWOLLEN TONGUE [None]
